FAERS Safety Report 22269619 (Version 1)
Quarter: 2023Q2

REPORT INFORMATION
  Report Type: Spontaneous
  Country: US (occurrence: US)
  Receive Date: 20230501
  Receipt Date: 20230501
  Transmission Date: 20230722
  Serious: Yes (Other)
  Sender: FDA-Public Use
  Company Number: US-AMGEN-USASP2023071344

PATIENT
  Age: 68 Year
  Sex: Male

DRUGS (3)
  1. MVASI [Suspect]
     Active Substance: BEVACIZUMAB-AWWB
     Indication: Product used for unknown indication
     Dosage: UNK
     Route: 065
  2. LONSURF [Suspect]
     Active Substance: TIPIRACIL HYDROCHLORIDE\TRIFLURIDINE
     Indication: Rectal cancer
     Dosage: 15 MILLIGRAM, Q12H, (75 MILLIGRAM(S), 1 IN 12 HOUR)
     Route: 048
     Dates: start: 20220829
  3. LONSURF [Suspect]
     Active Substance: TIPIRACIL HYDROCHLORIDE\TRIFLURIDINE
     Dosage: 60 MILLIGRAM, Q12H, (60 MILLIGRAM(S), 1 IN 12 HOUR)
     Route: 048

REACTIONS (2)
  - Rectal cancer metastatic [Unknown]
  - Platelet count decreased [Unknown]
